FAERS Safety Report 16939737 (Version 1)
Quarter: 2019Q4

REPORT INFORMATION
  Report Type: Report from Study
  Country: US (occurrence: US)
  Receive Date: 20191021
  Receipt Date: 20191021
  Transmission Date: 20200122
  Serious: Yes (Death)
  Sender: FDA-Public Use
  Company Number: US-ROCHE-2445604

PATIENT

DRUGS (1)
  1. BEVACIZUMAB. [Suspect]
     Active Substance: BEVACIZUMAB
     Indication: RETINOPATHY OF PREMATURITY
     Route: 065

REACTIONS (4)
  - Pneumonia [Fatal]
  - Craniocerebral injury [Fatal]
  - Short-bowel syndrome [Fatal]
  - Bronchopulmonary dysplasia [Fatal]
